FAERS Safety Report 23591574 (Version 1)
Quarter: 2024Q1

REPORT INFORMATION
  Report Type: Spontaneous
  Country: US (occurrence: None)
  Receive Date: 20240302
  Receipt Date: 20240302
  Transmission Date: 20240410
  Serious: Yes (Hospitalization)
  Sender: FDA-Public Use
  Company Number: None

PATIENT
  Age: 53 Year
  Sex: Female
  Weight: 61.1 kg

DRUGS (3)
  1. CYTARABINE [Suspect]
     Active Substance: CYTARABINE
     Dosage: OTHER QUANTITY : 200-40 MG;?
     Dates: end: 20240222
  2. METHOTREXATE [Suspect]
     Active Substance: METHOTREXATE
     Dates: end: 20240221
  3. PONATINIB [Suspect]
     Active Substance: PONATINIB
     Dates: end: 20240227

REACTIONS (4)
  - Syncope [None]
  - Diarrhoea [None]
  - Pyrexia [None]
  - Antibiotic therapy [None]

NARRATIVE: CASE EVENT DATE: 20240228
